FAERS Safety Report 16296058 (Version 3)
Quarter: 2020Q4

REPORT INFORMATION
  Report Type: Spontaneous
  Country: US (occurrence: US)
  Receive Date: 20190509
  Receipt Date: 20201015
  Transmission Date: 20210113
  Serious: No
  Sender: FDA-Public Use
  Company Number: US-SA-2019SA123620

PATIENT

DRUGS (4)
  1. CEREZYME [Suspect]
     Active Substance: IMIGLUCERASE
     Dosage: 6000 IU, QOW
     Route: 042
     Dates: start: 2020
  2. CEREZYME [Suspect]
     Active Substance: IMIGLUCERASE
     Indication: GAUCHER^S DISEASE
     Dosage: 6000 IU, QOW
     Route: 042
     Dates: start: 20180314, end: 2019
  3. CEREZYME [Suspect]
     Active Substance: IMIGLUCERASE
     Dosage: 6000 IU, QOW
     Route: 042
     Dates: start: 2019, end: 2019
  4. CEREZYME [Suspect]
     Active Substance: IMIGLUCERASE
     Dosage: 6000 IU, QOW
     Route: 042
     Dates: start: 2019, end: 2020

REACTIONS (1)
  - Product dose omission issue [Unknown]

NARRATIVE: CASE EVENT DATE: 20190501
